APPROVED DRUG PRODUCT: FENTANYL CITRATE
Active Ingredient: FENTANYL CITRATE
Strength: EQ 0.05MG BASE/ML
Dosage Form/Route: INJECTABLE;INJECTION
Application: A073488 | Product #001
Applicant: WATSON LABORATORIES INC
Approved: Jun 30, 1992 | RLD: No | RS: No | Type: DISCN